FAERS Safety Report 7350027-5 (Version None)
Quarter: 2011Q1

REPORT INFORMATION
  Report Type: 
  Country: None (occurrence: None)
  Receive Date: 20110314
  Receipt Date: 20110309
  Transmission Date: 20110831
  Serious: Yes (Other)
  Sender: FDA-Public Use
  Company Number: FR-ROCHE-764565

PATIENT
  Sex: Female

DRUGS (10)
  1. KEPPRA [Concomitant]
     Dosage: LONG TERM TREATMENT
     Dates: end: 20110112
  2. PREVISCAN [Suspect]
     Dosage: THERAPY START DATE: LONG TERM TREATMENT
     Route: 048
     Dates: end: 20110112
  3. CIFLOX [Suspect]
     Route: 048
     Dates: start: 20110110, end: 20110112
  4. CRESTOR [Concomitant]
     Dosage: LONG TERM TREATMENT
  5. LAMICTAL [Concomitant]
     Dosage: LONG TERM TREATMENT
  6. CORDARONE [Concomitant]
     Dosage: LONG TERM TREATMENT
  7. NEXIUM [Concomitant]
     Dosage: LONG TERM TREATMENT
  8. ROCEPHIN [Suspect]
     Dosage: THERAPY START DATE: BEFORE 10 JAN 2011
     Route: 042
     Dates: end: 20110112
  9. COVERSYL [Concomitant]
     Dosage: LONG TERM TREATMENT
     Dates: end: 20110112
  10. GARDENAL [Concomitant]
     Dosage: LONG TERM TREATMENT

REACTIONS (1)
  - INTERNATIONAL NORMALISED RATIO INCREASED [None]
